FAERS Safety Report 7929203 (Version 5)
Quarter: 2013Q3

REPORT INFORMATION
  Report Type: Report from Study
  Country: MY (occurrence: MY)
  Receive Date: 20110504
  Receipt Date: 20130911
  Transmission Date: 20140515
  Serious: Yes (Hospitalization)
  Sender: FDA-Public Use
  Company Number: MY-BRISTOL-MYERS SQUIBB COMPANY-15710270

PATIENT
  Age: 38 Year
  Sex: Female

DRUGS (5)
  1. ABILIFY TABS [Suspect]
     Indication: SCHIZOPHRENIA
     Dosage: INITIALLY 6 MG
     Route: 048
     Dates: start: 20110418, end: 20110530
  2. RANITIDINE [Suspect]
     Indication: GASTRITIS
     Dosage: TABS
     Route: 048
     Dates: start: 20110324, end: 20110718
  3. ZOLPIDEM [Suspect]
     Indication: INSOMNIA
     Dosage: TABLET
     Dates: start: 20110411, end: 20110531
  4. RISPERIDAL [Concomitant]
     Dosage: TABLET LAST: 2MG TWICE A DAY
     Dates: start: 20110126, end: 20110616
  5. ARTANE [Concomitant]
     Dosage: TABLET?ON MORNING
     Dates: start: 20110323

REACTIONS (1)
  - Psychotic disorder [Recovered/Resolved]
